FAERS Safety Report 7563407-X (Version None)
Quarter: 2011Q2

REPORT INFORMATION
  Report Type: 
  Country: None (occurrence: None)
  Receive Date: 20110622
  Receipt Date: 20110603
  Transmission Date: 20111010
  Serious: Yes (Hospitalization)
  Sender: FDA-Public Use
  Company Number: B0700851A

PATIENT
  Age: 58 Year
  Sex: Male

DRUGS (2)
  1. AVANDAMET [Suspect]
     Indication: DIABETES MELLITUS
     Route: 048
     Dates: start: 20050801, end: 20051101
  2. AVANDIA [Suspect]
     Indication: DIABETES MELLITUS
     Dosage: 4MG PER DAY
     Route: 048
     Dates: start: 20051101, end: 20070601

REACTIONS (8)
  - ARRHYTHMIA [None]
  - SURGERY [None]
  - VENTRICULAR REMODELING [None]
  - ISCHAEMIC CARDIOMYOPATHY [None]
  - MYOCARDIAL INFARCTION [None]
  - PALPITATIONS [None]
  - CARDIAC FAILURE CONGESTIVE [None]
  - VENTRICULAR TACHYCARDIA [None]
